FAERS Safety Report 8622213-5 (Version None)
Quarter: 2012Q3

REPORT INFORMATION
  Report Type: 
  Country: None (occurrence: None)
  Receive Date: 20120827
  Receipt Date: 20120822
  Transmission Date: 20120928
  Serious: Yes (Other)
  Sender: FDA-Public Use
  Company Number: US-AMGEN-USACT2011066607

PATIENT
  Age: 17 Year
  Sex: Female
  Weight: 72.5 kg

DRUGS (2)
  1. ETANERCEPT [Suspect]
     Indication: JUVENILE ARTHRITIS
     Dosage: UNK
     Dates: start: 20070401, end: 20080301
  2. METHOTREXATE SODIUM [Concomitant]
     Indication: JUVENILE ARTHRITIS
     Dosage: UNK
     Dates: start: 20061101, end: 20090801

REACTIONS (1)
  - THYROID CANCER [None]
